FAERS Safety Report 4404573-4 (Version None)
Quarter: 2004Q3

REPORT INFORMATION
  Report Type: 
  Country: None (occurrence: None)
  Receive Date: 20040720
  Receipt Date: 20040707
  Transmission Date: 20050211
  Serious: Yes (Hospitalization)
  Sender: FDA-Public Use
  Company Number: 2004UW14018

PATIENT
  Age: 39 Year
  Sex: Female
  Weight: 74.8435 kg

DRUGS (12)
  1. SEROQUEL [Suspect]
     Dates: start: 20030707
  2. SINGULAIR ^DIECKMANN^ [Concomitant]
  3. SYNTHROID [Concomitant]
  4. VALIUM [Concomitant]
  5. CARBIDOPA [Concomitant]
  6. VITAMIN B6 [Concomitant]
  7. PRAZOSIN HCL [Concomitant]
  8. ZANTAC [Concomitant]
  9. MULTIVITAMIN ^LAPPE^ [Concomitant]
  10. REGLAN [Concomitant]
  11. MECLIZINE [Concomitant]
  12. ALBUTEROL ^DEU-LUTE^ [Concomitant]

REACTIONS (2)
  - CHEST PAIN [None]
  - SUPRAVENTRICULAR TACHYCARDIA [None]
